FAERS Safety Report 7629876-1 (Version None)
Quarter: 2011Q3

REPORT INFORMATION
  Report Type: 
  Country: None (occurrence: None)
  Receive Date: 20110722
  Receipt Date: 20110718
  Transmission Date: 20111222
  Serious: Yes (Hospitalization)
  Sender: FDA-Public Use
  Company Number: US-B.I. PHARMACEUTICALS,INC./RIDGEFIELD-2011-BP-17917BP

PATIENT
  Sex: Male

DRUGS (4)
  1. PRADAXA [Suspect]
     Indication: ATRIAL FIBRILLATION
     Dosage: 300 MG
     Route: 048
     Dates: start: 20110307, end: 20110711
  2. CLONIDINE [Concomitant]
     Indication: HYPERTENSION
  3. PRADAXA [Suspect]
     Dosage: 150 MG
     Route: 048
     Dates: start: 20110711, end: 20110718
  4. LISINOPRIL [Concomitant]
     Indication: HYPERTENSION
     Dates: end: 20110711

REACTIONS (3)
  - BLOOD CREATINE INCREASED [None]
  - RED BLOOD CELL COUNT DECREASED [None]
  - GLOMERULAR FILTRATION RATE DECREASED [None]
